FAERS Safety Report 23766906 (Version 5)
Quarter: 2024Q3

REPORT INFORMATION
  Report Type: Spontaneous
  Country: US (occurrence: US)
  Receive Date: 20240422
  Receipt Date: 20240711
  Transmission Date: 20241017
  Serious: Yes (Hospitalization)
  Sender: ACORDA
  Company Number: US-ACORDA-ACO_176876_2024

PATIENT
  Age: 73 Year
  Sex: Male

DRUGS (3)
  1. INBRIJA [Suspect]
     Active Substance: LEVODOPA
     Indication: Parkinson^s disease
     Dosage: 2 DOSAGE FORM (84MILLIGRAM), PRN (NOT TO EXCEED 5 DOSES A DAY; NOT TO EXCEED 2 DOSES PER DAY)
     Dates: start: 202306
  2. INBRIJA [Suspect]
     Active Substance: LEVODOPA
     Indication: On and off phenomenon
  3. CARBIDOPA\LEVODOPA [Concomitant]
     Active Substance: CARBIDOPA\LEVODOPA
     Indication: Product used for unknown indication
     Dosage: 25/250 MILLIGRAM, 1.5 DOSAGE FORM, 5X/QD
     Route: 065

REACTIONS (8)
  - Freezing phenomenon [Not Recovered/Not Resolved]
  - Intentional underdose [Recovered/Resolved]
  - Anxiety [Not Recovered/Not Resolved]
  - Product physical issue [Unknown]
  - Device issue [Unknown]
  - Device delivery system issue [Unknown]
  - Device difficult to use [Recovered/Resolved]
  - Product physical issue [Recovered/Resolved]

NARRATIVE: CASE EVENT DATE: 20240324
